FAERS Safety Report 6615385-5 (Version None)
Quarter: 2010Q1

REPORT INFORMATION
  Report Type: 
  Country: None (occurrence: None)
  Receive Date: 20100305
  Receipt Date: 20090930
  Transmission Date: 20100710
  Serious: No
  Sender: FDA-Public Use
  Company Number: A0810191A

PATIENT
  Sex: Female

DRUGS (1)
  1. ROPINIROLE [Suspect]
     Indication: RESTLESS LEGS SYNDROME
     Route: 048

REACTIONS (3)
  - PRODUCT QUALITY ISSUE [None]
  - SOMNOLENCE [None]
  - TABLET ISSUE [None]
